FAERS Safety Report 10695641 (Version 1)
Quarter: 2014Q4

REPORT INFORMATION
  Report Type: Report from Study
  Country: US (occurrence: None)
  Receive Date: 20141223
  Receipt Date: 20141223
  Transmission Date: 20150529
  Serious: Yes (Other)
  Sender: FDA-Public Use
  Company Number: CABO-14004785

PATIENT
  Age: 65 Year
  Sex: Female
  Weight: 60.3 kg

DRUGS (11)
  1. LANSOPRAZOLE. [Concomitant]
     Active Substance: LANSOPRAZOLE
  2. LEVOTHYROXINE [Concomitant]
     Active Substance: LEVOTHYROXINE
  3. B-12 (CYANOCOBALAMIN) [Concomitant]
  4. LISINOPRIL. [Concomitant]
     Active Substance: LISINOPRIL
  5. ALPRAZOLAM. [Concomitant]
     Active Substance: ALPRAZOLAM
  6. ATORVASTATIN [Concomitant]
     Active Substance: ATORVASTATIN
  7. PREDNISONE. [Concomitant]
     Active Substance: PREDNISONE
  8. ALLOPURINOL. [Concomitant]
     Active Substance: ALLOPURINOL
  9. COMETRIQ [Suspect]
     Active Substance: CABOZANTINIB S-MALATE
     Indication: RENAL CANCER
     Route: 048
     Dates: start: 20140917, end: 20140923
  10. KLOR CON (POTASSIUM CHLORIDE) [Concomitant]
  11. METOPROLOL [Concomitant]
     Active Substance: METOPROLOL

REACTIONS (14)
  - Pain in jaw [None]
  - Pulmonary embolism [None]
  - Cough [None]
  - Diarrhoea [None]
  - Glossitis [None]
  - Nausea [None]
  - Blood glucose increased [None]
  - Constipation [None]
  - Blood pressure increased [None]
  - Off label use [None]
  - Vomiting [None]
  - Oral discomfort [None]
  - Decreased appetite [None]
  - Toothache [None]

NARRATIVE: CASE EVENT DATE: 2014
